FAERS Safety Report 18130851 (Version 4)
Quarter: 2021Q3

REPORT INFORMATION
  Report Type: Spontaneous
  Country: AU (occurrence: AU)
  Receive Date: 20200810
  Receipt Date: 20210824
  Transmission Date: 20211014
  Serious: Yes (Death, Life-Threatening, Hospitalization, Other)
  Sender: FDA-Public Use
  Company Number: AU-AMGEN-AUSSP2020127454

PATIENT

DRUGS (1)
  1. CARFILZOMIB [Suspect]
     Active Substance: CARFILZOMIB
     Indication: PLASMA CELL MYELOMA
     Dosage: UNK
     Route: 065

REACTIONS (25)
  - Pseudomonas infection [Unknown]
  - Clostridium difficile infection [Unknown]
  - Influenza [Unknown]
  - Escherichia bacteraemia [Unknown]
  - Salmonellosis [Unknown]
  - Klebsiella infection [Fatal]
  - Rhinovirus infection [Unknown]
  - Hypogammaglobulinaemia [Unknown]
  - Herpes zoster [Unknown]
  - Respiratory tract infection [Unknown]
  - Sepsis [Unknown]
  - Respiratory syncytial virus infection [Unknown]
  - Cytomegalovirus infection reactivation [Unknown]
  - Campylobacter colitis [Unknown]
  - Adenovirus infection [Unknown]
  - Cryptococcosis [Fatal]
  - Systemic mycosis [Unknown]
  - Enterovirus infection [Unknown]
  - Candida infection [Fatal]
  - Haemophilus infection [Unknown]
  - Parainfluenzae virus infection [Unknown]
  - Metapneumovirus infection [Unknown]
  - Staphylococcal infection [Unknown]
  - Neutropenia [Unknown]
  - Enterococcal infection [Unknown]
